FAERS Safety Report 25633440 (Version 1)
Quarter: 2025Q3

REPORT INFORMATION
  Report Type: Spontaneous
  Country: US (occurrence: None)
  Receive Date: 20250731
  Receipt Date: 20250731
  Transmission Date: 20251021
  Serious: No
  Sender: FDA-CTU
  Company Number: None

PATIENT
  Age: 30 Year
  Sex: Female

DRUGS (1)
  1. ZURZUVAE [Suspect]
     Active Substance: ZURANOLONE
     Indication: Perinatal depression
     Dosage: 50 MG AT BEDTIME ORAL ?
     Route: 048

REACTIONS (7)
  - Suicidal ideation [None]
  - Crying [None]
  - Depression [None]
  - Fatigue [None]
  - Flatulence [None]
  - Constipation [None]
  - Dyspepsia [None]

NARRATIVE: CASE EVENT DATE: 20250705
